FAERS Safety Report 9162251 (Version 1)
Quarter: 2013Q1

REPORT INFORMATION
  Report Type: Spontaneous
  Country: US (occurrence: None)
  Receive Date: 20130222
  Receipt Date: 20130222
  Transmission Date: 20140127
  Serious: Yes (Other)
  Sender: FDA-Public Use
  Company Number: ACO_23671_2011

PATIENT
  Age: 47 Year
  Sex: Female

DRUGS (8)
  1. AMPYRA [Suspect]
     Indication: PRODUCT USED FOR UNKNOWN INDICATION
     Route: 048
     Dates: start: 20110119, end: 20110421
  2. CLONIDINE (CLONIDINE) ) [Concomitant]
  3. DILTIAZEM [Concomitant]
  4. JANUVIA (SITAGLIPTIN PHOSPHATE) [Concomitant]
  5. LABETALOL (LABETALOL) [Concomitant]
  6. ASPIRIN (ACETYLSALICYLIC ACID) [Concomitant]
  7. VICODIN (HYDROCODONE BITARTRATE, PARACETAMOL) [Concomitant]
  8. REBIF (INTERFERON BETA-1A) [Concomitant]

REACTIONS (4)
  - Convulsion [None]
  - Tremor [None]
  - Diarrhoea [None]
  - Pain in extremity [None]
